FAERS Safety Report 8271573-6 (Version None)
Quarter: 2012Q2

REPORT INFORMATION
  Report Type: 
  Country: None (occurrence: None)
  Receive Date: 20120410
  Receipt Date: 20120405
  Transmission Date: 20120825
  Serious: Yes (Hospitalization)
  Sender: FDA-Public Use
  Company Number: US-GLAXOSMITHKLINE-A0794727A

PATIENT
  Age: 73 Year
  Sex: Male
  Weight: 90.9 kg

DRUGS (6)
  1. ELAVIL [Concomitant]
  2. METFORMIN HCL [Concomitant]
  3. GLUCOTROL [Concomitant]
  4. LIPITOR [Concomitant]
  5. AVANDIA [Suspect]
     Indication: TYPE 2 DIABETES MELLITUS
     Dosage: 4MG TWICE PER DAY
     Route: 048
     Dates: start: 20050224, end: 20080101
  6. CARDIZEM [Concomitant]

REACTIONS (3)
  - SICK SINUS SYNDROME [None]
  - ATRIAL FIBRILLATION [None]
  - CARDIAC FAILURE CONGESTIVE [None]
